FAERS Safety Report 24858605 (Version 4)
Quarter: 2025Q1

REPORT INFORMATION
  Report Type: Report from Study
  Country: CN (occurrence: CN)
  Receive Date: 20250118
  Receipt Date: 20250206
  Transmission Date: 20250408
  Serious: Yes (Death, Life-Threatening, Other)
  Sender: AMGEN
  Company Number: CN-AMGEN-CHNNI2024166245

PATIENT
  Age: 70 Year
  Sex: Female
  Weight: 50 kg

DRUGS (6)
  1. DENOSUMAB [Suspect]
     Active Substance: DENOSUMAB
     Indication: Bone cancer metastatic
     Dosage: 120 MILLIGRAM, Q4WK
     Route: 058
     Dates: start: 20240517, end: 20240712
  2. PEGFILGRASTIM [Concomitant]
     Active Substance: PEGFILGRASTIM
     Route: 058
     Dates: start: 20240516, end: 20240516
  3. METFORMIN [Concomitant]
     Active Substance: METFORMIN HYDROCHLORIDE
     Route: 048
     Dates: start: 2021, end: 20240710
  4. SINTILIMAB [Concomitant]
     Active Substance: SINTILIMAB
     Route: 042
     Dates: start: 20240305, end: 20240711
  5. FERRIC POLYSACCHARIDE COMPLEX [Concomitant]
     Active Substance: FERRIC POLYSACCHARIDE COMPLEX
     Route: 048
     Dates: start: 20240517, end: 2024
  6. INSULIN NOS [Concomitant]
     Active Substance: INSULIN NOS
     Route: 058
     Dates: start: 2019, end: 20240804

REACTIONS (13)
  - Cardiac failure [Not Recovered/Not Resolved]
  - Renal failure [Not Recovered/Not Resolved]
  - Ascites [Not Recovered/Not Resolved]
  - Type 2 diabetes mellitus [Not Recovered/Not Resolved]
  - Neoplasm progression [Fatal]
  - Ascites [Not Recovered/Not Resolved]
  - Hypokalaemia [Recovered/Resolved]
  - Ileus [Not Recovered/Not Resolved]
  - Hypoproteinaemia [Not Recovered/Not Resolved]
  - Hypoproteinaemia [Not Recovered/Not Resolved]
  - Gastrointestinal infection [Not Recovered/Not Resolved]
  - Hyponatraemia [Recovered/Resolved]
  - Hypocalcaemia [Not Recovered/Not Resolved]

NARRATIVE: CASE EVENT DATE: 20240605
